FAERS Safety Report 11405464 (Version 1)
Quarter: 2015Q3

REPORT INFORMATION
  Report Type: Spontaneous
  Country: CH (occurrence: CH)
  Receive Date: 20150821
  Receipt Date: 20150821
  Transmission Date: 20151125
  Serious: Yes (Other)
  Sender: FDA-Public Use
  Company Number: CH-IMPAX LABORATORIES, INC-2015-IPXL-00859

PATIENT
  Age: 28 Year
  Sex: Female

DRUGS (3)
  1. LEVONORGESTREL. [Suspect]
     Active Substance: LEVONORGESTREL
     Indication: CONTRACEPTION
     Dosage: 1.5 MG
     Route: 048
  2. LAMOTRIGINE ODT [Suspect]
     Active Substance: LAMOTRIGINE
     Indication: GENERALISED TONIC-CLONIC SEIZURE
     Dosage: 200 MG, DAILY
     Route: 065
  3. LAMOTRIGINE ODT [Suspect]
     Active Substance: LAMOTRIGINE
     Indication: EPILEPSY
     Dosage: 150 MG, DAILY
     Route: 065

REACTIONS (3)
  - Drug level below therapeutic [Recovered/Resolved]
  - Status epilepticus [Recovered/Resolved]
  - Drug interaction [Unknown]
